FAERS Safety Report 14967518 (Version 3)
Quarter: 2019Q1

REPORT INFORMATION
  Report Type: Report from Study
  Country: US (occurrence: US)
  Receive Date: 20180604
  Receipt Date: 20190117
  Transmission Date: 20190417
  Serious: Yes (Other)
  Sender: FDA-Public Use
  Company Number: US-ROCHE-2130820

PATIENT
  Age: 57 Year
  Sex: Male
  Weight: 74.91 kg

DRUGS (9)
  1. OCREVUS [Suspect]
     Active Substance: OCRELIZUMAB
     Dosage: INITIAL SPLIT IN TWO: ONGOING YES
     Route: 042
  2. STRATTERA [Concomitant]
     Active Substance: ATOMOXETINE HYDROCHLORIDE
     Indication: ATTENTION DEFICIT/HYPERACTIVITY DISORDER
     Dosage: ONGOING YES
     Route: 065
  3. OCREVUS [Suspect]
     Active Substance: OCRELIZUMAB
     Indication: RELAPSING-REMITTING MULTIPLE SCLEROSIS
     Dosage: HALF DOSE
     Route: 042
     Dates: start: 201706
  4. PREDNISONE. [Concomitant]
     Active Substance: PREDNISONE
     Dosage: ONGOING: NO
     Route: 065
  5. BENADRYL [Concomitant]
     Active Substance: DIPHENHYDRAMINE HYDROCHLORIDE
     Dosage: ONGOING: NO
     Route: 065
  6. OCREVUS [Suspect]
     Active Substance: OCRELIZUMAB
     Dosage: FULL DOSE
     Route: 042
     Dates: start: 20180104
  7. BENADRYL [Concomitant]
     Active Substance: DIPHENHYDRAMINE HYDROCHLORIDE
     Dosage: MORE ;ONGOING: UNKNOWN
     Route: 065
     Dates: start: 201801
  8. PREDNISONE. [Concomitant]
     Active Substance: PREDNISONE
     Route: 065
     Dates: start: 201801
  9. OCREVUS [Suspect]
     Active Substance: OCRELIZUMAB
     Dosage: ONGOING UNKNOWN
     Route: 042
     Dates: start: 20180710

REACTIONS (6)
  - Chills [Recovered/Resolved]
  - Pain [Unknown]
  - Hypothermia [Recovered/Resolved]
  - Hypertension [Recovered/Resolved]
  - Hypermetabolism [Unknown]
  - Muscle spasms [Unknown]

NARRATIVE: CASE EVENT DATE: 20180104
